FAERS Safety Report 14413029 (Version 1)
Quarter: 2018Q1

REPORT INFORMATION
  Report Type: Spontaneous
  Country: TH (occurrence: TH)
  Receive Date: 20180119
  Receipt Date: 20180119
  Transmission Date: 20180509
  Serious: Yes (Other)
  Sender: FDA-Public Use
  Company Number: TH-JNJFOC-20180116853

PATIENT

DRUGS (3)
  1. TENOFOVIR DISOPROXIL FUMARATE. [Suspect]
     Active Substance: TENOFOVIR DISOPROXIL FUMARATE
     Indication: HIV INFECTION
     Dosage: ADOLESCENTS WITH THE BODY WEIGHTS GREATERTHAN EQUAL TO 30 KILOGRAMS
     Route: 048
  2. RITONAVIR. [Suspect]
     Active Substance: RITONAVIR
     Indication: HIV INFECTION
     Route: 065
  3. DARUNAVIR [Suspect]
     Active Substance: DARUNAVIR
     Indication: HIV INFECTION
     Route: 048

REACTIONS (1)
  - Renal impairment [Unknown]
